FAERS Safety Report 19036838 (Version 1)
Quarter: 2021Q1

REPORT INFORMATION
  Report Type: Spontaneous
  Country: US (occurrence: US)
  Receive Date: 20210322
  Receipt Date: 20210322
  Transmission Date: 20210420
  Serious: Yes (Hospitalization)
  Sender: FDA-Public Use
  Company Number: None

PATIENT
  Age: 65 Year
  Sex: Male

DRUGS (2)
  1. ASPIRIN (ASPIRIN 81MG TAB,EC) [Suspect]
     Active Substance: ASPIRIN
     Route: 048
     Dates: start: 20190306, end: 20210208
  2. DABIGATRAN (DABIGATRAN ETEXILATE 150MG CAP, ORAL) [Suspect]
     Active Substance: DABIGATRAN
     Indication: ATRIAL FIBRILLATION
     Route: 048
     Dates: start: 20190430, end: 20210208

REACTIONS (1)
  - Anaemia [None]

NARRATIVE: CASE EVENT DATE: 20210208
